FAERS Safety Report 6749788-5 (Version None)
Quarter: 2010Q2

REPORT INFORMATION
  Report Type: 
  Country: None (occurrence: None)
  Receive Date: 20100601
  Receipt Date: 20100525
  Transmission Date: 20101027
  Serious: Yes (Life-Threatening)
  Sender: FDA-Public Use
  Company Number: US-MERCK-1001USA03409

PATIENT
  Age: 59 Year
  Sex: Female
  Weight: 66 kg

DRUGS (5)
  1. JANUVIA [Suspect]
     Indication: TYPE 2 DIABETES MELLITUS
     Route: 048
     Dates: start: 20070101
  2. JANUVIA [Suspect]
     Route: 048
     Dates: start: 20091212, end: 20091226
  3. JANUVIA [Suspect]
     Indication: DIABETES MELLITUS
     Route: 048
     Dates: start: 20070101
  4. JANUVIA [Suspect]
     Route: 048
     Dates: start: 20091212, end: 20091226
  5. SYNTHROID [Concomitant]
     Route: 065

REACTIONS (2)
  - BLOOD GLUCOSE FLUCTUATION [None]
  - MALAISE [None]
